FAERS Safety Report 9994818 (Version 1)
Quarter: 2014Q1

REPORT INFORMATION
  Report Type: Spontaneous
  Country: US (occurrence: None)
  Receive Date: 20140307
  Receipt Date: 20140307
  Transmission Date: 20141002
  Serious: Yes (Hospitalization, Disabling)
  Sender: FDA-Public Use
  Company Number: None

PATIENT
  Age: 2 Year
  Sex: Male
  Weight: 49.9 kg

DRUGS (1)
  1. DIPHENHYDRAMINE [Suspect]
     Indication: PRURITUS
     Dosage: 2-4 PILLS  TWICE DAILY TAKEN BY MOUTH
     Route: 048

REACTIONS (3)
  - Grand mal convulsion [None]
  - Dyspnoea [None]
  - Gait disturbance [None]
